FAERS Safety Report 12706787 (Version 2)
Quarter: 2016Q3

REPORT INFORMATION
  Report Type: Spontaneous
  Country: US (occurrence: US)
  Receive Date: 20160901
  Receipt Date: 20160916
  Transmission Date: 20161109
  Serious: No
  Sender: FDA-Public Use
  Company Number: US-GLAXOSMITHKLINE-US2016125807

PATIENT
  Age: 82 Year
  Sex: Male
  Weight: 102.4 kg

DRUGS (11)
  1. MUCOMIST (ACETYLCYSTEINE) [Concomitant]
  2. ZETIA [Concomitant]
     Active Substance: EZETIMIBE
  3. XOLAIR [Concomitant]
     Active Substance: OMALIZUMAB
  4. NUCALA [Suspect]
     Active Substance: MEPOLIZUMAB
     Indication: ASTHMA
     Dosage: 100 MG, U
     Route: 058
     Dates: start: 20160823, end: 20160824
  5. BROVANA [Concomitant]
     Active Substance: ARFORMOTEROL TARTRATE
  6. DILTIAZEM. [Concomitant]
     Active Substance: DILTIAZEM
  7. FUROSEMIDE. [Concomitant]
     Active Substance: FUROSEMIDE
  8. LEVOTHYROXINE. [Concomitant]
     Active Substance: LEVOTHYROXINE
  9. PULMICORT TURBUHALER [Concomitant]
     Active Substance: BUDESONIDE
  10. LEXAPRO [Concomitant]
     Active Substance: ESCITALOPRAM OXALATE
  11. NITROSTAT [Concomitant]
     Active Substance: NITROGLYCERIN

REACTIONS (1)
  - Swelling face [Recovered/Resolved]

NARRATIVE: CASE EVENT DATE: 201608
